FAERS Safety Report 4678712-4 (Version None)
Quarter: 2005Q2

REPORT INFORMATION
  Report Type: 
  Country: None (occurrence: None)
  Receive Date: 20050531
  Receipt Date: 20050517
  Transmission Date: 20051028
  Serious: Yes (Other)
  Sender: FDA-Public Use
  Company Number: 2005075527

PATIENT
  Age: 47 Year
  Sex: Male
  Weight: 158.759 kg

DRUGS (4)
  1. UNISOM [Suspect]
     Indication: INSOMNIA
     Dosage: 2-4 SLEEPGELS PRN, 6 SLEEPGELS
     Dates: start: 20041201, end: 20050517
  2. GLIPIZIDE [Concomitant]
  3. NITROGLYCERIN [Concomitant]
  4. DRUG, UNSPECIFIED (DRUG, UNSPECIFIED) [Concomitant]

REACTIONS (2)
  - DYSPNOEA [None]
  - FATIGUE [None]
